FAERS Safety Report 5496593-6 (Version None)
Quarter: 2007Q4

REPORT INFORMATION
  Report Type: 
  Country: None (occurrence: None)
  Receive Date: 20071025
  Receipt Date: 20070620
  Transmission Date: 20080405
  Serious: No
  Sender: FDA-Public Use
  Company Number: A0659484A

PATIENT

DRUGS (3)
  1. ADVAIR DISKUS 100/50 [Suspect]
     Indication: DRUG USE FOR UNKNOWN INDICATION
     Route: 055
  2. SEPTRA [Concomitant]
  3. SPIRIVA [Concomitant]

REACTIONS (1)
  - TOOTH DISCOLOURATION [None]
